FAERS Safety Report 5712022-9 (Version None)
Quarter: 2008Q2

REPORT INFORMATION
  Report Type: 
  Country: None (occurrence: None)
  Receive Date: 20080417
  Receipt Date: 20080404
  Transmission Date: 20081010
  Serious: Yes (Disabling)
  Sender: FDA-Public Use
  Company Number: 2008000804

PATIENT
  Age: 64 Year
  Sex: Female

DRUGS (7)
  1. TARCEVA [Suspect]
     Indication: NON-SMALL CELL LUNG CANCER
     Dosage: (150 MG,QD), ORAL : (100 MG,QD), ORAL
     Route: 048
     Dates: start: 20070901, end: 20071201
  2. TARCEVA [Suspect]
     Indication: NON-SMALL CELL LUNG CANCER
     Dosage: (150 MG,QD), ORAL : (100 MG,QD), ORAL
     Route: 048
     Dates: start: 20071201
  3. DIGOXIN [Concomitant]
  4. VITAMINS NOS (VITAMINS NOS) [Concomitant]
  5. COD LIVER OIL [Concomitant]
  6. WARFARIN SODIUM [Concomitant]
  7. FLECAINIDE ACETATE [Concomitant]

REACTIONS (2)
  - RASH [None]
  - VULVOVAGINAL DRYNESS [None]
